FAERS Safety Report 5684183-1 (Version None)
Quarter: 2008Q1

REPORT INFORMATION
  Report Type: 
  Country: None (occurrence: None)
  Receive Date: 20080328
  Receipt Date: 20070910
  Transmission Date: 20080703
  Serious: No
  Sender: FDA-Public Use
  Company Number: US-AMGEN-US242650

PATIENT
  Sex: Female

DRUGS (5)
  1. NEULASTA [Suspect]
     Indication: CHEMOTHERAPY
     Route: 065
     Dates: start: 20070427
  2. ADRIAMYCIN PFS [Concomitant]
     Route: 065
  3. BLEOMYCIN SULFATE [Concomitant]
     Route: 065
  4. VINBLASTINE SULFATE [Concomitant]
     Route: 065
  5. DACARBAZINE [Concomitant]
     Route: 065

REACTIONS (1)
  - COUGH [None]
